FAERS Safety Report 6292134-4 (Version None)
Quarter: 2009Q3

REPORT INFORMATION
  Report Type: 
  Country: None (occurrence: None)
  Receive Date: 20090730
  Receipt Date: 20090730
  Transmission Date: 20100115
  Serious: Yes (Other)
  Sender: FDA-Public Use
  Company Number: None

PATIENT
  Age: 49 Year
  Sex: Male
  Weight: 85.7298 kg

DRUGS (2)
  1. PLAVIX [Suspect]
     Indication: CORONARY ARTERY BYPASS
     Dosage: 1 TABLET 75 MG PER, DAILY, PO
     Route: 048
     Dates: start: 20071228, end: 20090726
  2. PLAVIX [Suspect]
     Indication: POSTOPERATIVE CARE
     Dosage: 1 TABLET 75 MG PER, DAILY, PO
     Route: 048
     Dates: start: 20071228, end: 20090726

REACTIONS (6)
  - ARTHRALGIA [None]
  - BACK PAIN [None]
  - INFLAMMATION [None]
  - IRITIS [None]
  - MUSCULOSKELETAL PAIN [None]
  - WALKING AID USER [None]
